FAERS Safety Report 9033431 (Version 1)
Quarter: 2013Q1

REPORT INFORMATION
  Report Type: Spontaneous
  Country: DE (occurrence: DE)
  Receive Date: 20130128
  Receipt Date: 20130128
  Transmission Date: 20140127
  Serious: Yes (Death, Other)
  Sender: FDA-Public Use
  Company Number: DE-AMGEN-UK038650

PATIENT
  Age: 68 Year
  Sex: Female
  Weight: 68 kg

DRUGS (3)
  1. ARANESP [Suspect]
     Indication: ANAEMIA OF MALIGNANT DISEASE
     Dosage: 300 MUG, QWK
     Route: 058
     Dates: start: 20021211, end: 20021217
  2. IRINOTECAN HYDROCHLORIDE [Concomitant]
     Dosage: 80 MG/M2, UNK
     Dates: start: 20021101, end: 20021217
  3. FLUOROURACIL [Concomitant]
     Dosage: 2000 MG/M2, UNK
     Dates: start: 20021101, end: 20021217

REACTIONS (2)
  - Pulmonary embolism [Fatal]
  - Colon cancer [Not Recovered/Not Resolved]
